FAERS Safety Report 19113469 (Version 1)
Quarter: 2021Q2

REPORT INFORMATION
  Report Type: Spontaneous
  Country: US (occurrence: US)
  Receive Date: 20210409
  Receipt Date: 20210409
  Transmission Date: 20210717
  Serious: No
  Sender: FDA-Public Use
  Company Number: US-ALLERGAN-2013540US

PATIENT
  Age: 32 Year
  Sex: Female

DRUGS (3)
  1. LIPITOR [Concomitant]
     Active Substance: ATORVASTATIN CALCIUM
  2. FERROUS SULFATE. [Concomitant]
     Active Substance: FERROUS SULFATE
     Indication: IRON DEFICIENCY
  3. LILETTA [Suspect]
     Active Substance: LEVONORGESTREL
     Indication: INTERMENSTRUAL BLEEDING
     Dosage: 52 MG, SINGLE
     Route: 015
     Dates: start: 20191018, end: 20200226

REACTIONS (3)
  - Intermenstrual bleeding [Unknown]
  - Device expulsion [Unknown]
  - Off label use [Unknown]

NARRATIVE: CASE EVENT DATE: 20191018
